FAERS Safety Report 4270297-X (Version None)
Quarter: 2004Q1

REPORT INFORMATION
  Report Type: 
  Country: None (occurrence: None)
  Receive Date: 20040113
  Receipt Date: 20040113
  Transmission Date: 20041129
  Serious: No
  Sender: FDA-Public Use
  Company Number: None

PATIENT
  Sex: Female

DRUGS (1)
  1. TAMOXIFEN CITRATE [Suspect]
     Indication: BREAST CANCER
     Dosage: 20 MG ONCE DAILY TAKEN ORALLY
     Route: 048
     Dates: start: 19990501

REACTIONS (6)
  - BREAST MICROCALCIFICATION [None]
  - DIZZINESS [None]
  - MAMMOGRAM ABNORMAL [None]
  - NAUSEA [None]
  - NIGHT SWEATS [None]
  - PHARMACEUTICAL PRODUCT COMPLAINT [None]
